FAERS Safety Report 7034913-1 (Version None)
Quarter: 2010Q4

REPORT INFORMATION
  Report Type: 
  Country: None (occurrence: None)
  Receive Date: 20101008
  Receipt Date: 20101001
  Transmission Date: 20110411
  Serious: Yes (Death, Other)
  Sender: FDA-Public Use
  Company Number: CH-GENZYME-FLUD-1000262

PATIENT
  Age: 9 Year
  Sex: Female

DRUGS (10)
  1. FLUDARA [Suspect]
     Indication: APLASTIC ANAEMIA
     Dosage: UNK
  2. FLUDARA [Suspect]
     Indication: STEM CELL TRANSPLANT
  3. CAMPATH [Suspect]
     Indication: STEM CELL TRANSPLANT
  4. ANTI-THYMOCYTE GLOBULIN NOS [Suspect]
     Indication: STEM CELL TRANSPLANT
     Dosage: UNK
  5. ANTI-THYMOCYTE GLOBULIN NOS [Suspect]
     Indication: APLASTIC ANAEMIA
  6. CYCLOPHOSPHAMIDE [Suspect]
     Indication: STEM CELL TRANSPLANT
     Dosage: UNK
  7. CYCLOPHOSPHAMIDE [Suspect]
     Indication: APLASTIC ANAEMIA
  8. CYCLOSPORINE [Concomitant]
     Indication: PROPHYLAXIS AGAINST GRAFT VERSUS HOST DISEASE
  9. METHYLPREDNISOLONE [Concomitant]
     Indication: PROPHYLAXIS AGAINST GRAFT VERSUS HOST DISEASE
  10. MYCOPHENOLATE MOFETIL [Concomitant]
     Indication: PROPHYLAXIS AGAINST GRAFT VERSUS HOST DISEASE

REACTIONS (9)
  - ACUTE GRAFT VERSUS HOST DISEASE IN INTESTINE [None]
  - CYTOMEGALOVIRUS INFECTION [None]
  - DEATH [None]
  - HERPES VIRUS INFECTION [None]
  - MICROANGIOPATHY [None]
  - PERICARDIAL EFFUSION [None]
  - PLEURAL EFFUSION [None]
  - PULMONARY ARTERIAL HYPERTENSION [None]
  - RESPIRATORY FAILURE [None]
